FAERS Safety Report 5588341-6 (Version None)
Quarter: 2008Q1

REPORT INFORMATION
  Report Type: 
  Country: None (occurrence: None)
  Receive Date: 20080111
  Receipt Date: 20070917
  Transmission Date: 20080703
  Serious: No
  Sender: FDA-Public Use
  Company Number: A0682448A

PATIENT
  Sex: Female

DRUGS (1)
  1. TYKERB [Suspect]
     Indication: BREAST CANCER
     Dosage: 5CAP PER DAY
     Route: 048
     Dates: start: 20070817

REACTIONS (1)
  - HYPOAESTHESIA [None]
